FAERS Safety Report 4801203-4 (Version None)
Quarter: 2005Q4

REPORT INFORMATION
  Report Type: 
  Country: None (occurrence: None)
  Receive Date: 20051011
  Receipt Date: 20050928
  Transmission Date: 20060501
  Serious: Yes (Hospitalization, Other)
  Sender: FDA-Public Use
  Company Number: 2005136806

PATIENT
  Age: 48 Year
  Sex: Male

DRUGS (5)
  1. METHYLPREDNISOLONE SODIUM SUCCINATE [Suspect]
     Indication: DERMATOMYOSITIS
     Dosage: 1000 MG (3 IN 2 WK), INTRAVENOUS
     Route: 042
     Dates: start: 19980101
  2. METHYLPREDNISOLONE SODIUM SUCCINATE [Suspect]
     Indication: SYSTEMIC LUPUS ERYTHEMATOSUS
     Dosage: 1000 MG (3 IN 2 WK), INTRAVENOUS
     Route: 042
     Dates: start: 19980101
  3. PREDNISONE [Suspect]
     Indication: DERMATOMYOSITIS
     Dosage: 80 MG (1 IN 1 D)
  4. PREDNISONE [Suspect]
     Indication: SYSTEMIC LUPUS ERYTHEMATOSUS
     Dosage: 80 MG (1 IN 1 D)
  5. ANTIHYPERTENSIVES  (ANTIHYPERTENSIVES) [Concomitant]

REACTIONS (16)
  - BLOOD CREATINE PHOSPHOKINASE INCREASED [None]
  - CYTOMEGALOVIRUS CHORIORETINITIS [None]
  - DERMATOMYOSITIS [None]
  - DETACHMENT OF RETINAL PIGMENT EPITHELIUM [None]
  - HERPES ZOSTER [None]
  - INTERSTITIAL LUNG DISEASE [None]
  - MUSCULAR WEAKNESS [None]
  - PYREXIA [None]
  - RASH [None]
  - RETINAL DETACHMENT [None]
  - RETINAL EXUDATES [None]
  - RETINAL HAEMORRHAGE [None]
  - RETINAL PIGMENT EPITHELIOPATHY [None]
  - UVEITIS [None]
  - VISION BLURRED [None]
  - VISUAL ACUITY REDUCED [None]
